FAERS Safety Report 10071658 (Version 3)
Quarter: 2014Q2

REPORT INFORMATION
  Report Type: Spontaneous
  Country: US (occurrence: US)
  Receive Date: 20140411
  Receipt Date: 20140507
  Transmission Date: 20141212
  Serious: Yes (Other)
  Sender: FDA-Public Use
  Company Number: US-AMGEN INC.-USASP2014025220

PATIENT
  Age: 33 Year
  Sex: Female
  Weight: 93.88 kg

DRUGS (1)
  1. ENBREL [Suspect]
     Indication: PSORIASIS
     Dosage: UNK
     Route: 065
     Dates: start: 2003, end: 2010

REACTIONS (1)
  - Papillary thyroid cancer [Recovered/Resolved]
